FAERS Safety Report 8095425-X (Version None)
Quarter: 2012Q1

REPORT INFORMATION
  Report Type: 
  Country: None (occurrence: None)
  Receive Date: 20120129
  Receipt Date: 20111229
  Transmission Date: 20120608
  Serious: No
  Sender: FDA-Public Use
  Company Number: US-ABBOTT-11P-163-0887536-00

PATIENT
  Sex: Male
  Weight: 145.28 kg

DRUGS (8)
  1. HUMIRA [Suspect]
     Indication: PSORIASIS
     Dates: start: 20111101, end: 20111210
  2. QUINAPRIL [Concomitant]
     Indication: HYPERTENSION
  3. POTASSIUM [Concomitant]
     Indication: MINERAL SUPPLEMENTATION
  4. CARVEDILOL [Concomitant]
     Indication: HEART RATE IRREGULAR
  5. HUMIRA [Suspect]
     Indication: PSORIATIC ARTHROPATHY
  6. BUMETANIDE [Concomitant]
     Indication: DIURETIC THERAPY
  7. WARFARIN SODIUM [Concomitant]
     Indication: ANTICOAGULANT THERAPY
  8. MINOXIDIL [Concomitant]
     Indication: HYPERTENSION

REACTIONS (3)
  - PNEUMONIA [None]
  - PRODUCTIVE COUGH [None]
  - RESPIRATORY TRACT CONGESTION [None]
